FAERS Safety Report 21985066 (Version 5)
Quarter: 2023Q2

REPORT INFORMATION
  Report Type: Report from Study
  Country: US (occurrence: US)
  Receive Date: 20230213
  Receipt Date: 20230529
  Transmission Date: 20230722
  Serious: No
  Sender: FDA-Public Use
  Company Number: US-002147023-NVSC2023US029180

PATIENT
  Age: 16 Year
  Sex: Male

DRUGS (1)
  1. OMNITROPE [Suspect]
     Active Substance: SOMATROPIN
     Indication: Product used for unknown indication
     Dosage: 2.4 MG, QD
     Route: 058
     Dates: start: 20230205

REACTIONS (7)
  - Tremor [Unknown]
  - Injection site pain [Unknown]
  - Device physical property issue [Not Recovered/Not Resolved]
  - Incorrect dose administered by device [Unknown]
  - Device difficult to use [Unknown]
  - Drug delivery system issue [Not Recovered/Not Resolved]
  - Incorrect drug administration rate [Unknown]

NARRATIVE: CASE EVENT DATE: 20230205
